FAERS Safety Report 7550935-6 (Version None)
Quarter: 2011Q2

REPORT INFORMATION
  Report Type: 
  Country: None (occurrence: None)
  Receive Date: 20110616
  Receipt Date: 20110602
  Transmission Date: 20111010
  Serious: Yes (Other)
  Sender: FDA-Public Use
  Company Number: US-CELGENEUS-163-21660-11060907

PATIENT

DRUGS (5)
  1. FLUOROURACIL [Suspect]
     Indication: SQUAMOUS CELL CARCINOMA
     Dosage: 750 MILLIGRAM/SQ. METER
     Route: 065
  2. ABRAXANE [Suspect]
     Indication: SQUAMOUS CELL CARCINOMA
     Dosage: 100 MILLIGRAM/SQ. METER
     Route: 051
  3. CETUXIMAB [Suspect]
     Indication: SQUAMOUS CELL CARCINOMA
     Dosage: 250 MILLIGRAM/SQ. METER
     Route: 065
  4. CISPLATIN [Suspect]
     Indication: SQUAMOUS CELL CARCINOMA
     Dosage: 75 MILLIGRAM/SQ. METER
     Route: 065
  5. FLUIDS [Concomitant]
     Route: 051

REACTIONS (11)
  - RECTAL ABSCESS [None]
  - FATIGUE [None]
  - RENAL IMPAIRMENT [None]
  - NEUROPATHY PERIPHERAL [None]
  - THROMBOSIS IN DEVICE [None]
  - NEUTROPENIA [None]
  - BLOOD SODIUM DECREASED [None]
  - MUCOSAL INFLAMMATION [None]
  - DEEP VEIN THROMBOSIS [None]
  - LYMPHOPENIA [None]
  - PNEUMONIA [None]
